FAERS Safety Report 21108707 (Version 1)
Quarter: 2022Q3

REPORT INFORMATION
  Report Type: Spontaneous
  Country: IT (occurrence: IT)
  Receive Date: 20220721
  Receipt Date: 20220721
  Transmission Date: 20221027
  Serious: Yes (Death, Life-Threatening, Other)
  Sender: FDA-Public Use
  Company Number: IT-CELLTRION HEALTHCARE HUNGARY KFT-2022IT008005

PATIENT

DRUGS (44)
  1. DOXORUBICIN [Suspect]
     Active Substance: DOXORUBICIN
     Indication: Burkitt^s lymphoma
     Dosage: 50 MILLIGRAM/SQ. METER (50 MG/M2 I.V. BOLUS (INDUCTION PHASE DAY 29))
     Route: 040
  2. MELPHALAN [Suspect]
     Active Substance: MELPHALAN
     Indication: Product used for unknown indication
     Dosage: 140 MILLIGRAM/SQ. METER (140 MG/M2, BEAM REGIMEN DAY 6)
     Route: 065
  3. CISPLATIN [Suspect]
     Active Substance: CISPLATIN
     Indication: Burkitt^s lymphoma
     Dosage: 20 MILLIGRAM/SQ. METER (20 MG/M2/D BY 24-HOUR INFUSION (HIV NEGATIVE CONSOLIDATION PHASE DAY 50-53))
     Route: 065
  4. CISPLATIN [Suspect]
     Active Substance: CISPLATIN
     Indication: High-grade B-cell lymphoma
  5. CYTARABINE [Suspect]
     Active Substance: CYTARABINE
     Indication: Disease progression
     Dosage: 2 GRAM PER SQUARE METRE (2 G/M2 IN A 3-HOUR INFUSION, TWICE A DAY (EVERY 12 HOURS) (HIV POSITIVE CON
     Route: 065
  6. CYTARABINE [Suspect]
     Active Substance: CYTARABINE
     Indication: High-grade B-cell lymphoma
     Dosage: 2 GRAM PER SQUARE METRE (2 G/M2 EVERY 12 HOURS FOR FOUR DAYS, INTENSIFICATION PHASE 11 + 12 WEEK (DA
     Route: 065
  7. CYTARABINE [Suspect]
     Active Substance: CYTARABINE
     Indication: Burkitt^s lymphoma
     Dosage: UNK (ONE OR TWO COURSES OF R-IVAC OR R-ICE (DEBULKING CHEMOTHERAPY), INTENSIFICATION PHASE 1 + 4 WEE
     Route: 065
  8. CYTARABINE [Suspect]
     Active Substance: CYTARABINE
     Dosage: 200 MILLIGRAM/SQ. METER, TWO TIMES A DAY (200 MG/M2 EVERY 12 HOURS (BEAM REGIMEN DAYS 2-5))
     Route: 065
  9. CYTARABINE [Suspect]
     Active Substance: CYTARABINE
     Dosage: 50 MILLIGRAM (2 WEEKS) (CONVENTIONAL TRIPLE-DRUG INTRATHECAL CHEMOTHERAPY (METHOTREXATE 12 MG + CYTA
     Route: 065
  10. CYTARABINE [Suspect]
     Active Substance: CYTARABINE
     Dosage: 750 MILLIGRAM/SQ. METER  (750 MG/M2 FOLLOWED 3 HOURS LATER BY 1 G/M2 BY 24-HOUR INFUSION (HIV NEGATI
     Route: 065
  11. CYTARABINE [Suspect]
     Active Substance: CYTARABINE
     Dosage: 50 MILLIGRAM (50 MG + METHOTREXATE + STEROIDS (INDUCTION PHASE DAY 5, 19, 33))
     Route: 065
  12. CYCLOPHOSPHAMIDE [Suspect]
     Active Substance: CYCLOPHOSPHAMIDE
     Indication: High-grade B-cell lymphoma
     Dosage: 500 MILLIGRAM/SQ. METE (500 MG/M2 OVER 1 HOUR INFUSION, INDUCTION PHASE (DAY 0, 1)_)
     Route: 065
  13. CYCLOPHOSPHAMIDE [Suspect]
     Active Substance: CYCLOPHOSPHAMIDE
     Indication: Burkitt^s lymphoma
     Dosage: 4 GRAM PER SQUARE METRE (4 G/M2 (INTENSIFICATION PHASE: 7 + 8 WEEK))
     Route: 065
  14. LEUCOVORIN CALCIUM [Suspect]
     Active Substance: LEUCOVORIN CALCIUM
     Indication: High-grade B-cell lymphoma
     Dosage: 15 MILLIGRAM/SQ. METER (15 MG/M2 I.V. STARTING 24 HOURS AFTER COMPLETING METHOTREXATE INFUSION, AND
     Route: 065
  15. LEUCOVORIN CALCIUM [Suspect]
     Active Substance: LEUCOVORIN CALCIUM
     Indication: Burkitt^s lymphoma
  16. CARMUSTINE [Suspect]
     Active Substance: CARMUSTINE
     Indication: Burkitt^s lymphoma
     Dosage: 300 MILLIGRAM/SQ. METER (300 MG/M2, BEAM REGIMEN DAY 1)
     Route: 065
  17. CARMUSTINE [Suspect]
     Active Substance: CARMUSTINE
     Indication: High-grade B-cell lymphoma
  18. CARBOPLATIN [Suspect]
     Active Substance: CARBOPLATIN
     Indication: Disease progression
     Dosage: UNK (INTENSIFICATION PHASE: ONE OR TWO COURSES OF R-IVAC OR R-ICE ON 1 + 4 WEEK)
     Route: 065
  19. CARBOPLATIN [Suspect]
     Active Substance: CARBOPLATIN
     Indication: Burkitt^s lymphoma
  20. CARBOPLATIN [Suspect]
     Active Substance: CARBOPLATIN
     Indication: High-grade B-cell lymphoma
  21. ETOPOSIDE [Suspect]
     Active Substance: ETOPOSIDE
     Indication: Disease progression
     Dosage: 250 MILLIGRAM/SQ. METER (250 MG/M2 EVERY 12 HOURS (INDUCTION PHASE DAY 15))
     Route: 065
  22. ETOPOSIDE [Suspect]
     Active Substance: ETOPOSIDE
     Indication: High-grade B-cell lymphoma
     Dosage: UNK (ONE OR TWO COURSES OF R-IVAC OR R-ICE (DEBULKING CHEMOTHERAPY), INTENSIFICATION PHASE 1 + 4 WEE
     Route: 065
  23. ETOPOSIDE [Suspect]
     Active Substance: ETOPOSIDE
     Indication: Burkitt^s lymphoma
     Dosage: 100 MILLIGRAM/SQ. METER (100 MG/M2 EVERY 12 HOURS (BEAM REGIMEN DAYS 2-5))
     Route: 065
  24. FOTEMUSTINE [Suspect]
     Active Substance: FOTEMUSTINE
     Indication: High-grade B-cell lymphoma
     Dosage: 150 MILLIGRAM/SQ. METER (CARMUSTINE WAS REPLACED BY FOTEMUSTINE 150 MG/M2/D DAYS 1)
     Route: 065
  25. FOTEMUSTINE [Suspect]
     Active Substance: FOTEMUSTINE
     Indication: Burkitt^s lymphoma
  26. GRANULOCYTE COLONY-STIMULATING FACTOR NOS [Suspect]
     Active Substance: GRANULOCYTE COLONY-STIMULATING FACTOR NOS
     Indication: Burkitt^s lymphoma
     Dosage: UNK (AFTER METHOTREXATE (DAY 21) AND ETOPOSIDE (DAY 15))
     Route: 065
  27. GRANULOCYTE COLONY-STIMULATING FACTOR NOS [Suspect]
     Active Substance: GRANULOCYTE COLONY-STIMULATING FACTOR NOS
     Indication: High-grade B-cell lymphoma
  28. HYDROCORTISONE [Suspect]
     Active Substance: HYDROCORTISONE
     Indication: High-grade B-cell lymphoma
     Dosage: 40 MILLIGRAM (CONVENTIONAL TRIPLE-DRUG INTRATHECAL CHEMOTHERAPY (METHOTREXATE 12 MG + CYTARABINE 50
     Route: 065
  29. HYDROCORTISONE [Suspect]
     Active Substance: HYDROCORTISONE
     Indication: Burkitt^s lymphoma
  30. IFOSFAMIDE [Suspect]
     Active Substance: IFOSFAMIDE
     Indication: Disease progression
     Dosage: UNK (ONE OR TWO COURSES OF R-IVAC OR R-ICE (DEBULKING CHEMOTHERAPY), INTENSIFICATION PHASE 1 + 4 WEE
     Route: 065
  31. IFOSFAMIDE [Suspect]
     Active Substance: IFOSFAMIDE
     Indication: High-grade B-cell lymphoma
  32. IFOSFAMIDE [Suspect]
     Active Substance: IFOSFAMIDE
     Indication: Burkitt^s lymphoma
  33. METHYLPREDNISOLONE [Suspect]
     Active Substance: METHYLPREDNISOLONE
     Indication: High-grade B-cell lymphoma
     Dosage: UNK (0.5-1 MG/KG/D I.V. (INDUCTION PHASE DAY -2, -1, 0, 1))
     Route: 065
  34. METHYLPREDNISOLONE [Suspect]
     Active Substance: METHYLPREDNISOLONE
     Indication: Burkitt^s lymphoma
  35. METHOTREXATE [Suspect]
     Active Substance: METHOTREXATE
     Indication: Burkitt^s lymphoma
     Dosage: 12 MILLIGRAM (12 MG + CYTARABINE + STEROIDS (INDUCTION PHASE DAY 5, 19, 33))
     Route: 065
  36. METHOTREXATE [Suspect]
     Active Substance: METHOTREXATE
     Indication: High-grade B-cell lymphoma
     Dosage: 3 GRAM PER SQUARE METRE   (3 G/M2 IV. OVER 6 HOURS WITH LEUCOVORIN RESCUE THERAPY (INDUCTION PHASE D
     Route: 040
  37. METHOTREXATE [Suspect]
     Active Substance: METHOTREXATE
     Dosage: 12 MILLIGRAM (CONVENTIONAL TRIPLE-DRUG INTRATHECAL CHEMOTHERAPY (METHOTREXATE 12 MG + CYTARABINE 50
     Route: 065
  38. RITUXIMAB [Suspect]
     Active Substance: RITUXIMAB
     Indication: Product used for unknown indication
     Dosage: 375 MILLIGRAM/SQ. METER (375 MG/M2, INTENSIFICATION PHASE 11 + 12 WEEK ON DAYS -1 AND 11)
     Route: 065
  39. RITUXIMAB [Suspect]
     Active Substance: RITUXIMAB
     Dosage: 375 MILLIGRAM/SQ. METER (375 MG/M2, INTENSIFICATION PHASE 7 + 8 WEEK ON DAYS 3 AND 10)
     Route: 065
  40. RITUXIMAB [Suspect]
     Active Substance: RITUXIMAB
     Dosage: 375 MILLIGRAM/SQ. METER (375 MG/M2, HIV-POSITIVE CONSOLIDATION PHASE (DAY 52, 60))C(375 MG/M2, HIV-P
     Route: 065
  41. RITUXIMAB [Suspect]
     Active Substance: RITUXIMAB
     Dosage: 375 MILLIGRAM/SQ. METER (375 MG/M2, INDUCTION PHASE (DAY 2, 14, 29, 36))
     Route: 065
  42. RITUXIMAB [Suspect]
     Active Substance: RITUXIMAB
     Dosage: 375 MILLIGRAM/SQ. METER (375 MG/M2, HIV-NEGATIVE CONSOLIDATION PHASE (DAY 56))
     Route: 065
  43. VINCRISTINE [Suspect]
     Active Substance: VINCRISTINE
     Indication: High-grade B-cell lymphoma
     Dosage: 2 MILLIGRAM (2 MG TOTAL DOSE I.V. BOLUS (INDUCTION PHASE DAY 0, 36))
     Route: 040
  44. VINCRISTINE [Suspect]
     Active Substance: VINCRISTINE
     Indication: Burkitt^s lymphoma

REACTIONS (30)
  - Lymphoma [Fatal]
  - COVID-19 [Fatal]
  - Bacterial infection [Fatal]
  - Sepsis [Fatal]
  - Febrile neutropenia [Fatal]
  - Acute myeloid leukaemia [Fatal]
  - Acute respiratory distress syndrome [Fatal]
  - Cerebrovascular accident [Unknown]
  - Bacterial infection [Unknown]
  - Cardiotoxicity [Unknown]
  - Anaemia [Unknown]
  - Neutropenia [Unknown]
  - Diarrhoea [Unknown]
  - Hepatotoxicity [Unknown]
  - Intestinal obstruction [Unknown]
  - Thrombocytopenia [Unknown]
  - Mucosal inflammation [Unknown]
  - Febrile neutropenia [Fatal]
  - Bacterial infection [Unknown]
  - Hepatotoxicity [Unknown]
  - Cytomegalovirus infection [Unknown]
  - Thrombocytopenia [Unknown]
  - Mucosal inflammation [Unknown]
  - Disease recurrence [Unknown]
  - Disease progression [Unknown]
  - Tumour lysis syndrome [Unknown]
  - Vomiting [Unknown]
  - Therapy partial responder [Unknown]
  - Headache [Unknown]
  - Off label use [Unknown]
